FAERS Safety Report 21731115 (Version 1)
Quarter: 2022Q4

REPORT INFORMATION
  Report Type: Report from Study
  Country: US (occurrence: US)
  Receive Date: 20221215
  Receipt Date: 20221215
  Transmission Date: 20230112
  Serious: Yes (Other)
  Sender: FDA-Public Use
  Company Number: US-SUN PHARMACEUTICAL INDUSTRIES LTD-2022R1-368359

PATIENT
  Age: 13 Year
  Sex: Female
  Weight: 46.3 kg

DRUGS (1)
  1. DESMOPRESSIN [Suspect]
     Active Substance: DESMOPRESSIN
     Indication: Von Willebrand^s disease
     Dosage: 150 MICROGRAM
     Route: 045

REACTIONS (1)
  - Therapy non-responder [Unknown]
